FAERS Safety Report 17588786 (Version 1)
Quarter: 2020Q1

REPORT INFORMATION
  Report Type: Spontaneous
  Country: JP (occurrence: JP)
  Receive Date: 20200327
  Receipt Date: 20200327
  Transmission Date: 20200409
  Serious: Yes (Hospitalization)
  Sender: FDA-Public Use
  Company Number: JP-TEVA-2020-JP-1214989

PATIENT
  Age: 84 Year
  Sex: Male

DRUGS (3)
  1. AZILECT [Suspect]
     Active Substance: RASAGILINE MESYLATE
     Dosage: 1 MILLIGRAM DAILY; ON 10-DEC-2019, THE DOSE WAS INCREASED TO 1 MG/DAY
     Route: 048
     Dates: start: 20191210, end: 20200303
  2. AZILECT [Suspect]
     Active Substance: RASAGILINE MESYLATE
     Indication: PARKINSON^S DISEASE
     Dosage: .5 MILLIGRAM DAILY; 0,5 MG DAILY
     Route: 048
     Dates: start: 20191015, end: 20191209
  3. NEODOPASTON [Concomitant]
     Active Substance: CARBIDOPA\LEVODOPA
     Dosage: 3 DOSAGE FORMS DAILY; 1 DOSAGE FORM= 1 TABLET
     Dates: end: 20191209

REACTIONS (3)
  - Orthostatic hypotension [Recovered/Resolved]
  - Bradykinesia [Unknown]
  - Syncope [Recovered/Resolved]

NARRATIVE: CASE EVENT DATE: 201912
